FAERS Safety Report 20158972 (Version 1)
Quarter: 2021Q4

REPORT INFORMATION
  Report Type: Spontaneous
  Country: GB (occurrence: GB)
  Receive Date: 20211208
  Receipt Date: 20211208
  Transmission Date: 20220304
  Serious: Yes (Hospitalization, Other)
  Sender: FDA-Public Use
  Company Number: None

PATIENT
  Age: 16 Year
  Sex: Male

DRUGS (2)
  1. BISOPROLOL [Suspect]
     Active Substance: BISOPROLOL
     Route: 065
  2. RAMIPRIL [Suspect]
     Active Substance: RAMIPRIL
     Route: 065

REACTIONS (8)
  - Discharge [Recovered/Resolved]
  - Sinus bradycardia [Recovered/Resolved]
  - Pericarditis [Recovered/Resolved]
  - Vomiting [Recovered/Resolved]
  - Genitourinary symptom [Recovered/Resolved]
  - Myocarditis [Recovering/Resolving]
  - Chest pain [Unknown]
  - Pyrexia [Unknown]

NARRATIVE: CASE EVENT DATE: 20211114
